FAERS Safety Report 7141493-9 (Version None)
Quarter: 2010Q4

REPORT INFORMATION
  Report Type: 
  Country: None (occurrence: None)
  Receive Date: 20101126
  Receipt Date: 20101114
  Transmission Date: 20110411
  Serious: Yes (Life-Threatening)
  Sender: FDA-Public Use
  Company Number: 1000017435

PATIENT
  Sex: Male

DRUGS (2)
  1. CITALOPRAM HYDROBROMIDE [Suspect]
     Dosage: ORAL
     Route: 048
     Dates: end: 20101112
  2. REMERGIL (MIRTAZAPINE) [Suspect]
     Dosage: ORAL
     Route: 048
     Dates: end: 20101112

REACTIONS (5)
  - CIRCULATORY COLLAPSE [None]
  - COMA [None]
  - DRUG SCREEN POSITIVE [None]
  - DYSPNOEA [None]
  - HYPOTENSION [None]
